FAERS Safety Report 8739935 (Version 2)
Quarter: 2014Q2

REPORT INFORMATION
  Report Type: Spontaneous
  Country: US (occurrence: US)
  Receive Date: 20120823
  Receipt Date: 20140502
  Transmission Date: 20141212
  Serious: Yes (Other)
  Sender: FDA-Public Use
  Company Number: US-ASTRAZENECA-2012SE57048

PATIENT
  Age: 65 Year
  Sex: Male
  Weight: 86.2 kg

DRUGS (19)
  1. CRESTOR [Suspect]
     Indication: LOW DENSITY LIPOPROTEIN INCREASED
     Route: 048
     Dates: start: 2001, end: 201401
  2. CRESTOR [Suspect]
     Indication: BLOOD CHOLESTEROL ABNORMAL
     Route: 048
     Dates: start: 2001, end: 201401
  3. CRESTOR [Suspect]
     Indication: LOW DENSITY LIPOPROTEIN INCREASED
     Route: 048
     Dates: start: 201401
  4. CRESTOR [Suspect]
     Indication: BLOOD CHOLESTEROL ABNORMAL
     Route: 048
     Dates: start: 201401
  5. CRESTOR [Suspect]
     Indication: LOW DENSITY LIPOPROTEIN INCREASED
     Route: 048
     Dates: start: 201403
  6. CRESTOR [Suspect]
     Indication: BLOOD CHOLESTEROL ABNORMAL
     Route: 048
     Dates: start: 201403
  7. NEXIUM [Suspect]
     Indication: GASTRIC ULCER
     Route: 048
     Dates: start: 2012
  8. BRILINTA [Suspect]
     Route: 048
  9. BRILINTA [Suspect]
     Route: 048
  10. BRILINTA [Suspect]
     Route: 048
     Dates: start: 2012
  11. ASPIRIN [Suspect]
  12. GLIMEPIRIDE [Concomitant]
     Indication: DIABETES MELLITUS
  13. METFORMIN [Concomitant]
     Indication: DIABETES MELLITUS
  14. LEVEMIR [Concomitant]
     Indication: DIABETES MELLITUS
  15. HUMALOG [Concomitant]
     Indication: DIABETES MELLITUS
  16. LEVOXYL [Concomitant]
     Indication: THYROID DISORDER
     Dates: start: 2001
  17. ALIGN [Concomitant]
     Dosage: 1 FOR FIRST 5 DAYS MONTH
  18. LASIX [Concomitant]
     Indication: DIURETIC THERAPY
  19. PLAVIX [Concomitant]

REACTIONS (8)
  - Myocardial infarction [Unknown]
  - Palpitations [Unknown]
  - Pain [Unknown]
  - Gastric ulcer [Not Recovered/Not Resolved]
  - Gastric disorder [Not Recovered/Not Resolved]
  - Limb discomfort [Not Recovered/Not Resolved]
  - Drug intolerance [Not Recovered/Not Resolved]
  - Drug dose omission [Not Recovered/Not Resolved]
